FAERS Safety Report 5068444-5 (Version None)
Quarter: 2006Q3

REPORT INFORMATION
  Report Type: 
  Country: None (occurrence: None)
  Receive Date: 20060802
  Receipt Date: 20051003
  Transmission Date: 20061208
  Serious: No
  Sender: FDA-Public Use
  Company Number: US-BRISTOL-MYERS SQUIBB COMPANY-13129424

PATIENT
  Age: 78 Year
  Sex: Female
  Weight: 52 kg

DRUGS (5)
  1. COUMADIN [Suspect]
     Indication: ATRIAL FIBRILLATION
     Dates: start: 20050920
  2. DILANTIN [Concomitant]
  3. PHENOBARBITAL TAB [Concomitant]
  4. CARTIA XT [Concomitant]
  5. DIGOXIN [Concomitant]

REACTIONS (4)
  - EYE INFECTION [None]
  - HEADACHE [None]
  - INTERNATIONAL NORMALISED RATIO FLUCTUATION [None]
  - SCLERAL HYPERAEMIA [None]
